FAERS Safety Report 7728794-8 (Version None)
Quarter: 2011Q3

REPORT INFORMATION
  Report Type: 
  Country: None (occurrence: None)
  Receive Date: 20110906
  Receipt Date: 20110829
  Transmission Date: 20111222
  Serious: Yes (Hospitalization)
  Sender: FDA-Public Use
  Company Number: SE-AMGEN-SWESP2011040282

PATIENT
  Age: 70 Year
  Sex: Male

DRUGS (4)
  1. ENBREL [Suspect]
     Indication: RHEUMATOID ARTHRITIS
     Dosage: 50 MG, WEEKLY
     Route: 058
     Dates: start: 20110101, end: 20110804
  2. ASPIRIN [Concomitant]
     Dosage: 75 MG, 1X/DAY
  3. SALURES [Concomitant]
     Dosage: 2.5 MG, 1X/DAY
  4. SIMVASTATIN [Concomitant]
     Dosage: 40 MG, 1X/DAY IN THE EVENING

REACTIONS (1)
  - GRAND MAL CONVULSION [None]
